FAERS Safety Report 11146309 (Version 1)
Quarter: 2015Q2

REPORT INFORMATION
  Report Type: Spontaneous
  Country: FI (occurrence: FI)
  Receive Date: 20150528
  Receipt Date: 20150528
  Transmission Date: 20150821
  Serious: Yes (Other)
  Sender: FDA-Public Use
  Company Number: FI-PFIZER INC-2015178097

PATIENT
  Age: 75 Year
  Sex: Female

DRUGS (2)
  1. LYRICA [Suspect]
     Active Substance: PREGABALIN
     Indication: NEURALGIA
     Dosage: UNK
     Route: 048
  2. LYRICA [Suspect]
     Active Substance: PREGABALIN
     Dosage: UNK
     Route: 048

REACTIONS (5)
  - Nausea [Not Recovered/Not Resolved]
  - Ulcerative keratitis [Not Recovered/Not Resolved]
  - Dizziness [Unknown]
  - Dry eye [Not Recovered/Not Resolved]
  - Blepharitis [Not Recovered/Not Resolved]
